FAERS Safety Report 9170627 (Version 1)
Quarter: 2013Q1

REPORT INFORMATION
  Report Type: Spontaneous
  Country: FR (occurrence: FR)
  Receive Date: 20130319
  Receipt Date: 20130319
  Transmission Date: 20140127
  Serious: Yes (Other)
  Sender: FDA-Public Use
  Company Number: FR-TEVA-390499ISR

PATIENT
  Sex: Female

DRUGS (2)
  1. COPAXONE [Suspect]
     Indication: MULTIPLE SCLEROSIS
     Dates: start: 2013
  2. PROZAC [Concomitant]
     Indication: ANTIDEPRESSANT THERAPY

REACTIONS (1)
  - Phlebitis superficial [Not Recovered/Not Resolved]
